FAERS Safety Report 14118532 (Version 5)
Quarter: 2019Q2

REPORT INFORMATION
  Report Type: Report from Study
  Country: US (occurrence: US)
  Receive Date: 20171024
  Receipt Date: 20190627
  Transmission Date: 20190711
  Serious: Yes (Other)
  Sender: FDA-Public Use
  Company Number: PHHY2017US088080

PATIENT
  Age: 34 Year
  Sex: Female

DRUGS (1)
  1. GILENYA [Suspect]
     Active Substance: FINGOLIMOD HYDROCHLORIDE
     Indication: MULTIPLE SCLEROSIS
     Dosage: UNK, QD
     Route: 048

REACTIONS (7)
  - JC polyomavirus test positive [Unknown]
  - Abdominal mass [Recovered/Resolved]
  - Melanocytic naevus [Unknown]
  - Lymphocyte count decreased [Unknown]
  - Acute sinusitis [Recovered/Resolved]
  - White blood cell count decreased [Unknown]
  - Aphasia [Unknown]

NARRATIVE: CASE EVENT DATE: 20170418
